FAERS Safety Report 12562366 (Version 2)
Quarter: 2016Q3

REPORT INFORMATION
  Report Type: Report from Study
  Country: US (occurrence: US)
  Receive Date: 20160715
  Receipt Date: 20160810
  Transmission Date: 20161109
  Serious: Yes (Hospitalization, Other)
  Sender: FDA-Public Use
  Company Number: US-MALLINCKRODT-T201602885

PATIENT
  Age: 61 Year
  Sex: Female

DRUGS (1)
  1. REPOSITORY CORTICOTROPIN INJECTION [Suspect]
     Active Substance: CORTICOTROPIN
     Indication: RHEUMATOID ARTHRITIS
     Dosage: 40U/.5ML 1 TIME WEEKLY
     Route: 058
     Dates: start: 20150114

REACTIONS (3)
  - Tachycardia [Recovered/Resolved]
  - Blood glucose increased [Recovered/Resolved]
  - Cardiac valve disease [Recovered/Resolved]

NARRATIVE: CASE EVENT DATE: 20160628
